FAERS Safety Report 6757953-6 (Version None)
Quarter: 2010Q2

REPORT INFORMATION
  Report Type: 
  Country: None (occurrence: None)
  Receive Date: 20100607
  Receipt Date: 20100525
  Transmission Date: 20101027
  Serious: Yes (Death)
  Sender: FDA-Public Use
  Company Number: US-RB-010346-10

PATIENT

DRUGS (1)
  1. BUPRENORPHINE [Suspect]
     Dosage: DOSING DETAILS UNKNOWN
     Route: 065

REACTIONS (1)
  - HAEMORRHAGE INTRACRANIAL [None]
